FAERS Safety Report 21936361 (Version 1)
Quarter: 2023Q1

REPORT INFORMATION
  Report Type: Spontaneous
  Country: US (occurrence: US)
  Receive Date: 20230201
  Receipt Date: 20230201
  Transmission Date: 20230417
  Serious: No
  Sender: FDA-Public Use
  Company Number: US-BEH-2023154773

PATIENT
  Sex: Female
  Weight: 47.619 kg

DRUGS (1)
  1. HIZENTRA [Suspect]
     Active Substance: HUMAN IMMUNOGLOBULIN G
     Indication: Combined immunodeficiency
     Dosage: 10 GRAM, QW
     Route: 058
     Dates: start: 202208

REACTIONS (4)
  - Weight fluctuation [Unknown]
  - Underweight [Unknown]
  - Headache [Unknown]
  - Infusion site pain [Unknown]
